FAERS Safety Report 6904131-3 (Version None)
Quarter: 2010Q3

REPORT INFORMATION
  Report Type: 
  Country: None (occurrence: None)
  Receive Date: 20100804
  Receipt Date: 20090318
  Transmission Date: 20110219
  Serious: No
  Sender: FDA-Public Use
  Company Number: US-PFIZER INC-2009153448

PATIENT
  Sex: Male

DRUGS (2)
  1. LYRICA [Suspect]
     Indication: COMPLEX REGIONAL PAIN SYNDROME
     Dosage: 100 MG, 3X/DAY
     Dates: start: 20060901
  2. TRAMADOL [Concomitant]
     Dosage: UNK

REACTIONS (2)
  - INFECTION [None]
  - LYMPHADENOPATHY [None]
